FAERS Safety Report 5866719-0 (Version None)
Quarter: 2008Q3

REPORT INFORMATION
  Report Type: 
  Country: None (occurrence: None)
  Receive Date: 20080902
  Receipt Date: 20080827
  Transmission Date: 20090109
  Serious: Yes (Other)
  Sender: FDA-Public Use
  Company Number: US-BAYER-200827664NA

PATIENT
  Age: 42 Year
  Sex: Female
  Weight: 104 kg

DRUGS (1)
  1. MIRENA [Suspect]
     Indication: CONTRACEPTION
     Route: 015
     Dates: start: 20060501, end: 20080703

REACTIONS (9)
  - ABDOMINAL PAIN [None]
  - DEPRESSION [None]
  - IUCD COMPLICATION [None]
  - MOOD SWINGS [None]
  - NAUSEA [None]
  - POST PROCEDURAL HAEMORRHAGE [None]
  - PROCEDURAL HEADACHE [None]
  - UTERINE RUPTURE [None]
  - WEIGHT INCREASED [None]
